FAERS Safety Report 19430612 (Version 2)
Quarter: 2021Q2

REPORT INFORMATION
  Report Type: Spontaneous
  Country: FR (occurrence: FR)
  Receive Date: 20210617
  Receipt Date: 20210622
  Transmission Date: 20210717
  Serious: Yes (Other)
  Sender: FDA-Public Use
  Company Number: FR-JNJFOC-20210623825

PATIENT
  Age: 65 Year
  Sex: Female

DRUGS (2)
  1. SPRAVATO [Suspect]
     Active Substance: ESKETAMINE
     Indication: DEPRESSION
     Dates: start: 20210426, end: 20210506
  2. SPRAVATO [Suspect]
     Active Substance: ESKETAMINE
     Dates: start: 202105, end: 202105

REACTIONS (2)
  - Drug ineffective [Unknown]
  - Bradycardia [Unknown]
